FAERS Safety Report 7964178-5 (Version None)
Quarter: 2011Q4

REPORT INFORMATION
  Report Type: 
  Country: None (occurrence: None)
  Receive Date: 20111208
  Receipt Date: 20111206
  Transmission Date: 20120403
  Serious: Yes (Hospitalization)
  Sender: FDA-Public Use
  Company Number: IT-BRISTOL-MYERS SQUIBB COMPANY-16224560

PATIENT
  Age: 84 Year
  Sex: Female

DRUGS (9)
  1. ASPIRIN [Concomitant]
  2. MONOCINQUE [Concomitant]
  3. PRAVASELECT [Concomitant]
  4. GLYCERYL TRINITRATE [Concomitant]
  5. IRBESARTAN AND HYDROCHLOROTHIAZIDE [Suspect]
     Indication: HYPERTENSION
     Route: 048
     Dates: start: 20080517, end: 20110517
  6. LEVOTHYROXINE SODIUM [Concomitant]
  7. MODURETIC 5-50 [Suspect]
     Indication: HYPERTENSION
     Route: 048
     Dates: start: 20100517, end: 20110517
  8. SOLOSA [Concomitant]
  9. ESKIM [Concomitant]

REACTIONS (3)
  - BRADYCARDIA [None]
  - HYPERKALAEMIA [None]
  - ATRIOVENTRICULAR BLOCK [None]
